FAERS Safety Report 5223217-5 (Version None)
Quarter: 2007Q1

REPORT INFORMATION
  Report Type: 
  Country: None (occurrence: None)
  Receive Date: 20070124
  Receipt Date: 20070109
  Transmission Date: 20070707
  Serious: Yes (Other)
  Sender: FDA-Public Use
  Company Number: VER_0036_2007

PATIENT
  Age: 3 Year
  Sex: Male

DRUGS (1)
  1. EPINEPHRINE [Suspect]
     Indication: HYPERSENSITIVITY
     Dosage: 0.15 MG SC
     Route: 058
     Dates: start: 20061201

REACTIONS (3)
  - DEVICE FAILURE [None]
  - HYPERSENSITIVITY [None]
  - PHARMACEUTICAL PRODUCT COMPLAINT [None]
